FAERS Safety Report 4363111-5 (Version None)
Quarter: 2004Q2

REPORT INFORMATION
  Report Type: 
  Country: None (occurrence: None)
  Receive Date: 20040517
  Receipt Date: 20040330
  Transmission Date: 20050107
  Serious: No
  Sender: FDA-Public Use
  Company Number: S04-USA-01762-01

PATIENT
  Age: 60 Year
  Sex: Female

DRUGS (5)
  1. NAMENDA [Suspect]
     Indication: HEAD INJURY
     Dosage: 5 MG QD PO
     Route: 048
     Dates: start: 20040301, end: 20040301
  2. NAMENDA [Suspect]
     Indication: HEAD INJURY
     Dosage: 10 MG QD PO
     Route: 048
     Dates: start: 20040301
  3. LAMICTAL [Concomitant]
  4. KLONOPIN [Concomitant]
  5. DURAGESIC [Concomitant]

REACTIONS (2)
  - FATIGUE [None]
  - HEADACHE [None]
